FAERS Safety Report 21689289 (Version 9)
Quarter: 2023Q1

REPORT INFORMATION
  Report Type: Report from Study
  Country: FI (occurrence: FI)
  Receive Date: 20221206
  Receipt Date: 20230322
  Transmission Date: 20230417
  Serious: Yes (Life-Threatening, Hospitalization)
  Sender: FDA-Public Use
  Company Number: FI-BIOGEN-2022BI01172000

PATIENT
  Age: 65 Year
  Sex: Male
  Weight: 82 kg

DRUGS (24)
  1. ADUCANUMAB [Suspect]
     Active Substance: ADUCANUMAB
     Indication: Dementia Alzheimer^s type
     Route: 050
     Dates: start: 20210128, end: 20210128
  2. ADUCANUMAB [Suspect]
     Active Substance: ADUCANUMAB
     Dosage: WEEK 4
     Route: 050
     Dates: start: 20210226, end: 20210226
  3. ADUCANUMAB [Suspect]
     Active Substance: ADUCANUMAB
     Dosage: WEEK 12
     Route: 050
     Dates: start: 20210419, end: 20210419
  4. ADUCANUMAB [Suspect]
     Active Substance: ADUCANUMAB
     Dosage: WEEK 16
     Route: 050
     Dates: start: 20210519, end: 20210519
  5. ADUCANUMAB [Suspect]
     Active Substance: ADUCANUMAB
     Dosage: WEEK 20
     Route: 050
     Dates: start: 20210617, end: 20210617
  6. ADUCANUMAB [Suspect]
     Active Substance: ADUCANUMAB
     Dosage: WEEK 28
     Route: 050
     Dates: start: 20210811, end: 20210811
  7. ADUCANUMAB [Suspect]
     Active Substance: ADUCANUMAB
     Dosage: WEEK 32
     Route: 050
     Dates: start: 20210913, end: 20210913
  8. ADUCANUMAB [Suspect]
     Active Substance: ADUCANUMAB
     Dosage: WEEK 36
     Route: 050
     Dates: start: 20211008, end: 20211008
  9. ADUCANUMAB [Suspect]
     Active Substance: ADUCANUMAB
     Dosage: WEEK 40
     Route: 050
     Dates: start: 20211105, end: 20211105
  10. ADUCANUMAB [Suspect]
     Active Substance: ADUCANUMAB
     Dosage: WEEK 56
     Route: 050
     Dates: start: 20220228, end: 20220228
  11. ADUCANUMAB [Suspect]
     Active Substance: ADUCANUMAB
     Dosage: WEEK 60
     Route: 050
     Dates: start: 20220328, end: 20220328
  12. ADUCANUMAB [Suspect]
     Active Substance: ADUCANUMAB
     Dosage: WEEK 64
     Route: 050
     Dates: start: 20220425, end: 20220425
  13. ADUCANUMAB [Suspect]
     Active Substance: ADUCANUMAB
     Dosage: WEEK 76
     Route: 050
     Dates: start: 20220718, end: 20220718
  14. ADUCANUMAB [Suspect]
     Active Substance: ADUCANUMAB
     Dosage: WEEK 84
     Route: 050
     Dates: start: 20220912, end: 20220912
  15. ADUCANUMAB [Suspect]
     Active Substance: ADUCANUMAB
     Dosage: WEEK 88
     Route: 050
     Dates: start: 20221010, end: 20221010
  16. ADUCANUMAB [Suspect]
     Active Substance: ADUCANUMAB
     Dosage: WEEK 92
     Route: 050
     Dates: start: 20221107, end: 20221107
  17. CANDESARTAN [Concomitant]
     Active Substance: CANDESARTAN
     Indication: Hypertension
     Route: 050
     Dates: start: 2014
  18. AMLODIPINE [Concomitant]
     Active Substance: AMLODIPINE BESYLATE
     Indication: Hypertension
     Route: 050
     Dates: start: 2019
  19. BISOPROLOL [Concomitant]
     Active Substance: BISOPROLOL
     Indication: Hypertension
     Route: 050
     Dates: start: 2019
  20. GALANTAMINE [Concomitant]
     Active Substance: GALANTAMINE
     Indication: Dementia Alzheimer^s type
     Route: 050
     Dates: start: 2017, end: 20221207
  21. MEMANTINE [Concomitant]
     Active Substance: MEMANTINE
     Indication: Dementia Alzheimer^s type
     Route: 050
     Dates: start: 20200925
  22. ROSUVASTATIN [Concomitant]
     Active Substance: ROSUVASTATIN
     Indication: Hypercholesterolaemia
     Route: 050
     Dates: start: 20220221
  23. MELATONIN [Concomitant]
     Active Substance: MELATONIN
     Indication: Restlessness
     Route: 050
     Dates: start: 20221120
  24. Stella (stella tartrate) [Concomitant]
     Indication: Restlessness
     Route: 050
     Dates: start: 20221126, end: 20221126

REACTIONS (2)
  - Amyloid related imaging abnormality-oedema/effusion [Recovered/Resolved with Sequelae]
  - Neuroborreliosis [Recovered/Resolved with Sequelae]

NARRATIVE: CASE EVENT DATE: 20221127
